FAERS Safety Report 6993713-9 (Version None)
Quarter: 2010Q3

REPORT INFORMATION
  Report Type: 
  Country: None (occurrence: None)
  Receive Date: 20100917
  Receipt Date: 20080605
  Transmission Date: 20110219
  Serious: Yes (Other)
  Sender: FDA-Public Use
  Company Number: US-ASTRAZENECA-2006UW12119

PATIENT
  Sex: Male
  Weight: 77.6 kg

DRUGS (9)
  1. SEROQUEL [Suspect]
     Indication: DEPRESSION
     Route: 048
     Dates: start: 20010101
  2. SEROQUEL [Suspect]
     Route: 048
  3. ZYPREXA [Suspect]
     Dates: start: 20020901
  4. GEODON [Concomitant]
     Dates: start: 20020228
  5. HALDOL [Concomitant]
  6. RISPERDAL [Concomitant]
  7. WELLBUTRIN [Concomitant]
     Dates: start: 20020217
  8. DILANTIN [Concomitant]
     Dates: start: 20020228
  9. PHENOBARBITAL [Concomitant]
     Dates: start: 20020228

REACTIONS (2)
  - DIABETES MELLITUS [None]
  - PANCREATITIS [None]
